FAERS Safety Report 12579493 (Version 1)
Quarter: 2016Q3

REPORT INFORMATION
  Report Type: Spontaneous
  Country: US (occurrence: US)
  Receive Date: 20160721
  Receipt Date: 20160721
  Transmission Date: 20161109
  Serious: No
  Sender: FDA-Public Use
  Company Number: US-TAKEDA-2016TUS012349

PATIENT
  Age: 60 Year
  Sex: Male
  Weight: 113.38 kg

DRUGS (8)
  1. ALPRAZOLAM. [Concomitant]
     Active Substance: ALPRAZOLAM
     Dosage: 0.5 MG, UNK
     Route: 065
  2. CIALIS [Concomitant]
     Active Substance: TADALAFIL
     Dosage: 20 MG, UNK
     Route: 065
  3. FINASTERIDE. [Concomitant]
     Active Substance: FINASTERIDE
     Dosage: 5 MG, UNK
     Route: 065
  4. LISINOPRIL. [Concomitant]
     Active Substance: LISINOPRIL
     Dosage: 40 MG, UNK
     Route: 065
  5. HYDROCHLOROTHIAZIDE. [Concomitant]
     Active Substance: HYDROCHLOROTHIAZIDE
     Dosage: 12.5 MG, UNK
     Route: 065
  6. TAMSULOSIN [Concomitant]
     Active Substance: TAMSULOSIN
     Dosage: 0.4 MG, UNK
     Route: 065
  7. TRINTELLIX [Suspect]
     Active Substance: VORTIOXETINE HYDROBROMIDE
     Indication: DEPRESSION
     Dosage: 10 MG, QD
     Route: 048
     Dates: start: 20160708
  8. SIMVASTATIN. [Concomitant]
     Active Substance: SIMVASTATIN
     Dosage: 40 MG, UNK
     Route: 065

REACTIONS (1)
  - Lip ulceration [Recovering/Resolving]

NARRATIVE: CASE EVENT DATE: 20160711
